FAERS Safety Report 10261744 (Version 1)
Quarter: 2014Q2

REPORT INFORMATION
  Report Type: Spontaneous
  Country: GB (occurrence: GB)
  Receive Date: 20140626
  Receipt Date: 20140626
  Transmission Date: 20141212
  Serious: Yes (Hospitalization)
  Sender: FDA-Public Use
  Company Number: GB-ASTRAZENECA-2014SE44974

PATIENT
  Age: 34 Year
  Sex: Female

DRUGS (2)
  1. HYPERBARIC BUPIVACAINE [Suspect]
     Indication: SPINAL ANAESTHESIA
     Route: 037
  2. DIAMORPHINE [Suspect]
     Indication: SPINAL ANAESTHESIA

REACTIONS (3)
  - Myocardial ischaemia [Recovered/Resolved]
  - Peripartum cardiomyopathy [Recovered/Resolved]
  - Hypotension [Recovered/Resolved]
